FAERS Safety Report 5757290-2 (Version None)
Quarter: 2008Q2

REPORT INFORMATION
  Report Type: 
  Country: None (occurrence: None)
  Receive Date: 20080603
  Receipt Date: 20080528
  Transmission Date: 20081010
  Serious: No
  Sender: FDA-Public Use
  Company Number: AR-ROCHE-559992

PATIENT
  Sex: Female
  Weight: 63 kg

DRUGS (2)
  1. ROACCUTAN [Suspect]
     Indication: ACNE
     Route: 048
     Dates: start: 20080120, end: 20080218
  2. CURACNE [Suspect]
     Indication: ACNE
     Route: 048
     Dates: start: 20070801, end: 20080201

REACTIONS (2)
  - NO ADVERSE EVENT [None]
  - PREGNANCY [None]
